FAERS Safety Report 15886282 (Version 1)
Quarter: 2019Q1

REPORT INFORMATION
  Report Type: Spontaneous
  Country: US (occurrence: US)
  Receive Date: 20190129
  Receipt Date: 20190129
  Transmission Date: 20190417
  Serious: No
  Sender: FDA-Public Use
  Company Number: US-US WORLDMEDS, LLC-USW201804-000525

PATIENT
  Sex: Male

DRUGS (1)
  1. NADOLOL. [Suspect]
     Active Substance: NADOLOL

REACTIONS (3)
  - Fatigue [Unknown]
  - Somnolence [Unknown]
  - Dizziness [Unknown]
